FAERS Safety Report 4795489-2 (Version None)
Quarter: 2005Q4

REPORT INFORMATION
  Report Type: 
  Country: None (occurrence: None)
  Receive Date: 20051006
  Receipt Date: 20051006
  Transmission Date: 20060501
  Serious: Yes (Death)
  Sender: FDA-Public Use
  Company Number: None

PATIENT
  Age: 84 Year
  Sex: Male
  Weight: 82 kg

DRUGS (1)
  1. FARESTON [Suspect]
     Indication: BREAST CANCER
     Dosage: 60MG QDAY P.O.
     Route: 048
     Dates: start: 20000911, end: 20050429

REACTIONS (1)
  - MYOCARDIAL INFARCTION [None]
